FAERS Safety Report 17547299 (Version 3)
Quarter: 2020Q1

REPORT INFORMATION
  Report Type: Report from Study
  Country: JP (occurrence: JP)
  Receive Date: 20200316
  Receipt Date: 20200331
  Transmission Date: 20200409
  Serious: Yes (Hospitalization)
  Sender: FDA-Public Use
  Company Number: JP-EISAI MEDICAL RESEARCH-EC-2020-071753

PATIENT
  Age: 68 Year
  Sex: Female
  Weight: 48 kg

DRUGS (7)
  1. URSODEOXYCHOLIC ACID [Concomitant]
     Active Substance: URSODIOL
  2. LIXIANA [Concomitant]
     Active Substance: EDOXABAN TOSYLATE
  3. GLYCYRON [Concomitant]
  4. ERIBULIN [Suspect]
     Active Substance: ERIBULIN
     Route: 042
     Dates: start: 20200219, end: 20200219
  5. ERIBULIN [Suspect]
     Active Substance: ERIBULIN
     Indication: GASTRIC CANCER
     Route: 042
     Dates: start: 20191218, end: 20200129
  6. TAKECAB [Concomitant]
     Active Substance: VONOPRAZAN FUMARATE
  7. PREDONINE [Concomitant]
     Active Substance: PREDNISOLONE

REACTIONS (1)
  - Hepatic function abnormal [Recovered/Resolved]

NARRATIVE: CASE EVENT DATE: 20200311
